FAERS Safety Report 25031705 (Version 1)
Quarter: 2025Q1

REPORT INFORMATION
  Report Type: Spontaneous
  Country: US (occurrence: US)
  Receive Date: 20250303
  Receipt Date: 20250303
  Transmission Date: 20250408
  Serious: No
  Sender: PFIZER
  Company Number: US-PFIZER INC-202500046805

PATIENT
  Age: 35 Year
  Sex: Female

DRUGS (38)
  1. XELJANZ [Suspect]
     Active Substance: TOFACITINIB CITRATE
     Dates: start: 201812, end: 201904
  2. ENBREL [Concomitant]
     Active Substance: ETANERCEPT
  3. RITUXIMAB [Concomitant]
     Active Substance: RITUXIMAB
  4. OTEZLA [Concomitant]
     Active Substance: APREMILAST
     Indication: Psoriasis
  5. PROVENTIL HFA [Concomitant]
     Active Substance: ALBUTEROL SULFATE
     Indication: Dyspnoea
  6. PROVENTIL HFA [Concomitant]
     Active Substance: ALBUTEROL SULFATE
     Indication: Wheezing
  7. VENTOLIN HFA [Concomitant]
     Active Substance: ALBUTEROL SULFATE
     Indication: Wheezing
  8. VENTOLIN HFA [Concomitant]
     Active Substance: ALBUTEROL SULFATE
     Indication: Dyspnoea
  9. ALUMINUM HYDROXIDE\DIMETHICONE\MAGNESIUM HYDROXIDE [Concomitant]
     Active Substance: ALUMINUM HYDROXIDE\DIMETHICONE\MAGNESIUM HYDROXIDE
  10. ELAVIL [Concomitant]
     Active Substance: AMITRIPTYLINE HYDROCHLORIDE
  11. AUGMENTIN [Concomitant]
     Active Substance: AMOXICILLIN\CLAVULANATE POTASSIUM
  12. ASTELIN [Concomitant]
     Active Substance: AZELASTINE HYDROCHLORIDE
  13. FLUTICASONE [Concomitant]
     Active Substance: FLUTICASONE
  14. BETAMETHASONE DIPROPIONATE [Concomitant]
     Active Substance: BETAMETHASONE DIPROPIONATE
  15. DOVONEX [Concomitant]
     Active Substance: CALCIPOTRIENE
  16. DEBROX [UREA HYDROGEN PEROXIDE] [Concomitant]
  17. VITAMIN D3 [Concomitant]
     Active Substance: CHOLECALCIFEROL
  18. LOTRISONE [Concomitant]
     Active Substance: BETAMETHASONE DIPROPIONATE\CLOTRIMAZOLE
     Indication: Rash
  19. ERGOCALCIFEROL [Concomitant]
     Active Substance: ERGOCALCIFEROL
  20. ESOMEPRAZOLE MAGNESIUM [Concomitant]
     Active Substance: ESOMEPRAZOLE MAGNESIUM
  21. PEPCID [Concomitant]
     Active Substance: FAMOTIDINE
  22. DIFLUCAN [Concomitant]
     Active Substance: FLUCONAZOLE
  23. ARNUITY ELLIPTA [Concomitant]
     Active Substance: FLUTICASONE FUROATE
  24. FLONASE [Concomitant]
     Active Substance: FLUTICASONE PROPIONATE
  25. KETAMINE [Concomitant]
     Active Substance: KETAMINE
  26. XYZAL [Concomitant]
     Active Substance: LEVOCETIRIZINE DIHYDROCHLORIDE
  27. MOBIC [Concomitant]
     Active Substance: MELOXICAM
  28. ROBAXIN [Concomitant]
     Active Substance: METHOCARBAMOL
     Indication: Muscle spasms
  29. TOPROL XL [Concomitant]
     Active Substance: METOPROLOL SUCCINATE
  30. SINGULAIR [Concomitant]
     Active Substance: MONTELUKAST SODIUM
  31. NALTREXONE [Concomitant]
     Active Substance: NALTREXONE
  32. ZOFRAN [Concomitant]
     Active Substance: ONDANSETRON HYDROCHLORIDE
  33. TOPAMAX [Concomitant]
     Active Substance: TOPIRAMATE
  34. KEVZARA [Concomitant]
     Active Substance: SARILUMAB
     Dates: start: 201904
  35. METHOTREXATE SODIUM [Concomitant]
     Active Substance: METHOTREXATE SODIUM
     Indication: Rheumatoid arthritis
     Dosage: 7.5 MG, WEEKLY
     Dates: start: 201904, end: 201909
  36. ORENCIA [Concomitant]
     Active Substance: ABATACEPT
     Indication: Rheumatoid arthritis
  37. SIMPONI ARIA [Concomitant]
     Active Substance: GOLIMUMAB
  38. ZOSTER [Concomitant]

REACTIONS (2)
  - Drug ineffective [Unknown]
  - Condition aggravated [Unknown]
